FAERS Safety Report 6162537-7 (Version None)
Quarter: 2009Q2

REPORT INFORMATION
  Report Type: 
  Country: None (occurrence: None)
  Receive Date: 20090421
  Receipt Date: 20090406
  Transmission Date: 20091009
  Serious: Yes (Hospitalization)
  Sender: FDA-Public Use
  Company Number: GB-PFIZER INC-2009194317

PATIENT

DRUGS (6)
  1. BLINDED *MIRTAZAPINE [Suspect]
     Indication: DEPRESSION
     Dates: start: 20090125
  2. BLINDED *PLACEBO [Suspect]
     Indication: DEPRESSION
     Dates: start: 20090125
  3. BLINDED SERTRALINE HCL [Suspect]
     Indication: DEPRESSION
     Dates: start: 20090125
  4. BLINDED *MIRTAZAPINE [Suspect]
     Indication: DEMENTIA
  5. BLINDED *PLACEBO [Suspect]
     Indication: DEMENTIA
  6. BLINDED SERTRALINE HCL [Suspect]
     Indication: DEMENTIA

REACTIONS (1)
  - CEREBROVASCULAR ACCIDENT [None]
